FAERS Safety Report 5875475-1 (Version None)
Quarter: 2008Q3

REPORT INFORMATION
  Report Type: 
  Country: None (occurrence: None)
  Receive Date: 20080909
  Receipt Date: 20080828
  Transmission Date: 20090109
  Serious: Yes (Death, Hospitalization)
  Sender: FDA-Public Use
  Company Number: CA-ROCHE-579761

PATIENT
  Sex: Male

DRUGS (6)
  1. PEGASYS [Suspect]
     Indication: HEPATITIS C
     Dosage: DOSAGE FORM REPORTED AS VIAL
     Route: 058
     Dates: start: 20080428, end: 20080801
  2. COPEGUS [Suspect]
     Indication: HEPATITIS C
     Route: 048
     Dates: start: 20080428, end: 20080801
  3. EPOGEN [Concomitant]
     Indication: ANAEMIA
     Dosage: STRENGTH: 40000 IU
     Route: 058
     Dates: start: 20080603, end: 20080801
  4. GLYBURIDE [Concomitant]
     Indication: DIABETES MELLITUS
     Dosage: DOSE: DAILY (QD)
     Route: 048
  5. PREVACID [Concomitant]
     Dosage: DOSE: DAILY (QD)
     Route: 048
  6. LORAZEPAM [Concomitant]
     Route: 048

REACTIONS (1)
  - HAEMORRHAGE INTRACRANIAL [None]
